FAERS Safety Report 6314278-0 (Version None)
Quarter: 2009Q3

REPORT INFORMATION
  Report Type: 
  Country: None (occurrence: None)
  Receive Date: 20090817
  Receipt Date: 20090806
  Transmission Date: 20100115
  Serious: Yes (Hospitalization)
  Sender: FDA-Public Use
  Company Number: 346296

PATIENT
  Age: 51 Year
  Sex: Male

DRUGS (4)
  1. VANCOMYCIN HCL [Suspect]
     Indication: ARTHRITIS BACTERIAL
     Dosage: INTRAVENOUS
     Route: 042
     Dates: start: 20090601, end: 20090620
  2. VANCOMYCIN HCL [Suspect]
     Indication: DEVICE RELATED INFECTION
     Dosage: INTRAVENOUS
     Route: 042
     Dates: start: 20090601, end: 20090620
  3. RIFAMPIN [Concomitant]
  4. CLOZARIL [Concomitant]

REACTIONS (2)
  - NEUTROPHIL COUNT DECREASED [None]
  - WHITE BLOOD CELL COUNT DECREASED [None]
